FAERS Safety Report 22325560 (Version 1)
Quarter: 2023Q2

REPORT INFORMATION
  Report Type: Spontaneous
  Country: US (occurrence: None)
  Receive Date: 20230515
  Receipt Date: 20230515
  Transmission Date: 20230721
  Serious: No
  Sender: FDA-Public Use
  Company Number: None

PATIENT

DRUGS (2)
  1. DEVICE [Suspect]
     Active Substance: DEVICE
  2. PROPOFOL [Suspect]
     Active Substance: PROPOFOL

REACTIONS (3)
  - Device colour issue [None]
  - Product quality issue [None]
  - Product contamination [None]
